FAERS Safety Report 18921299 (Version 2)
Quarter: 2021Q2

REPORT INFORMATION
  Report Type: Report from Study
  Country: CA (occurrence: CA)
  Receive Date: 20210222
  Receipt Date: 20210510
  Transmission Date: 20210717
  Serious: Yes (Other)
  Sender: FDA-Public Use
  Company Number: CA-EMD SERONO-9219793

PATIENT
  Age: 48 Year
  Sex: Male

DRUGS (1)
  1. REBIF [Suspect]
     Active Substance: INTERFERON BETA-1A
     Indication: PRODUCT USED FOR UNKNOWN INDICATION
     Route: 058
     Dates: start: 20120704

REACTIONS (9)
  - Injection site erythema [Unknown]
  - Injection site pain [Recovered/Resolved]
  - Injection site nodule [Unknown]
  - Injection site inflammation [Unknown]
  - Injection site warmth [Unknown]
  - Appendicitis [Unknown]
  - Peripheral swelling [Unknown]
  - Feeling hot [Unknown]
  - Joint swelling [Unknown]

NARRATIVE: CASE EVENT DATE: 201610
